FAERS Safety Report 6737004-X (Version None)
Quarter: 2010Q2

REPORT INFORMATION
  Report Type: 
  Country: None (occurrence: None)
  Receive Date: 20100523
  Receipt Date: 20100216
  Transmission Date: 20101027
  Serious: No
  Sender: FDA-Public Use
  Company Number: US-ALLERGAN-1001936US

PATIENT
  Age: 81 Year
  Sex: Female

DRUGS (5)
  1. COMBIGAN [Suspect]
     Indication: GLAUCOMA
     Dosage: UNK
     Route: 047
     Dates: start: 20100101
  2. LEVOXYL [Concomitant]
  3. NITROFURANT MACRO [Concomitant]
  4. VITAMINS [Concomitant]
  5. TRAVETON [Concomitant]

REACTIONS (3)
  - DYSPHAGIA [None]
  - PARAESTHESIA ORAL [None]
  - SWOLLEN TONGUE [None]
